FAERS Safety Report 7281213-0 (Version None)
Quarter: 2011Q1

REPORT INFORMATION
  Report Type: 
  Country: None (occurrence: None)
  Receive Date: 20110203
  Receipt Date: 20110203
  Transmission Date: 20110831
  Serious: Yes (Other)
  Sender: FDA-Public Use
  Company Number: None

PATIENT
  Age: 48 Year
  Sex: Female
  Weight: 79.3795 kg

DRUGS (2)
  1. ACTONEL [Suspect]
     Indication: HIP FRACTURE
     Dosage: ONE TABLET ONCE PER MONTH PO
     Route: 048
     Dates: start: 20100121, end: 20100421
  2. ACTONEL [Suspect]
     Indication: OSTEOPOROSIS
     Dosage: ONE TABLET ONCE PER MONTH PO
     Route: 048
     Dates: start: 20100121, end: 20100421

REACTIONS (3)
  - PAIN IN JAW [None]
  - TRISMUS [None]
  - JOINT CREPITATION [None]
